FAERS Safety Report 4357964-4 (Version None)
Quarter: 2004Q2

REPORT INFORMATION
  Report Type: 
  Country: None (occurrence: None)
  Receive Date: 20040513
  Receipt Date: 20040513
  Transmission Date: 20050107
  Serious: Yes (Other)
  Sender: FDA-Public Use
  Company Number: None

PATIENT
  Age: 24 Year
  Sex: Female
  Weight: 52.1637 kg

DRUGS (1)
  1. DEPO-PROVERA [Suspect]
     Dosage: EVERY 3 MON

REACTIONS (4)
  - DISCOMFORT [None]
  - INJECTION SITE ATROPHY [None]
  - INJECTION SITE PAIN [None]
  - INJECTION SITE REACTION [None]
